FAERS Safety Report 18975619 (Version 1)
Quarter: 2021Q1

REPORT INFORMATION
  Report Type: Spontaneous
  Country: US (occurrence: US)
  Receive Date: 20210306
  Receipt Date: 20210306
  Transmission Date: 20210420
  Serious: Yes (Other)
  Sender: FDA-Public Use
  Company Number: US-TEVA-2021-US-1887845

PATIENT
  Sex: Female

DRUGS (1)
  1. NEFAZODONE TEVA [Suspect]
     Active Substance: NEFAZODONE
     Dosage: START DATE: HAS BEEN TAKING NEFAZODONE FOR 20 YEARS
     Route: 065

REACTIONS (3)
  - Product availability issue [Unknown]
  - Vitreous detachment [Unknown]
  - Coeliac disease [Unknown]
